FAERS Safety Report 10088929 (Version 3)
Quarter: 2016Q1

REPORT INFORMATION
  Report Type: Report from Study
  Country: DE (occurrence: DE)
  Receive Date: 20140421
  Receipt Date: 20160224
  Transmission Date: 20160525
  Serious: Yes (Hospitalization)
  Sender: FDA-Public Use
  Company Number: PHHO2014DE005506

PATIENT
  Age: 50 Year
  Sex: Female

DRUGS (5)
  1. CGS 20267 [Suspect]
     Active Substance: LETROZOLE
     Indication: BREAST CANCER
     Dosage: 2.5 MG, QD (DAILY)
     Route: 048
     Dates: start: 20110822
  2. CYCLOPHOSPHAMIDE. [Suspect]
     Active Substance: CYCLOPHOSPHAMIDE
     Indication: BREAST CANCER
     Dosage: 880 MG, UNK
     Route: 042
     Dates: start: 20110211, end: 20110325
  3. FLUOROURACIL. [Suspect]
     Active Substance: FLUOROURACIL
     Indication: BREAST CANCER
     Dosage: 880 MG, Q3W
     Route: 042
     Dates: start: 20110211, end: 20110325
  4. EPIRUBICIN [Suspect]
     Active Substance: EPIRUBICIN
     Indication: BREAST CANCER
     Dosage: 176 MG, Q3W
     Route: 042
     Dates: start: 20110211, end: 20110325
  5. DOCETAXEL. [Suspect]
     Active Substance: DOCETAXEL
     Indication: BREAST CANCER
     Dosage: 178 MG, UNK
     Route: 042
     Dates: start: 20110415, end: 20110527

REACTIONS (2)
  - Renal cell carcinoma [Recovered/Resolved]
  - Second primary malignancy [Recovered/Resolved]

NARRATIVE: CASE EVENT DATE: 20130604
